FAERS Safety Report 19297841 (Version 6)
Quarter: 2021Q4

REPORT INFORMATION
  Report Type: Spontaneous
  Country: CH (occurrence: CH)
  Receive Date: 20210524
  Receipt Date: 20211217
  Transmission Date: 20220303
  Serious: Yes (Hospitalization, Other)
  Sender: FDA-Public Use
  Company Number: CH-AMERICAN REGENT INC-2021001306

PATIENT
  Age: 32 Year
  Sex: Female
  Weight: 83 kg

DRUGS (2)
  1. FERINJECT [Suspect]
     Active Substance: FERRIC CARBOXYMALTOSE
     Indication: Iron deficiency
     Dosage: 500 MG IN 100 ML NACL, ONCE
     Dates: start: 20210510, end: 20210510
  2. FERINJECT [Suspect]
     Active Substance: FERRIC CARBOXYMALTOSE
     Indication: Maternal exposure during pregnancy

REACTIONS (3)
  - Maternal exposure during pregnancy [Unknown]
  - Premature rupture of membranes [Not Recovered/Not Resolved]
  - Drug hypersensitivity [Recovered/Resolved]

NARRATIVE: CASE EVENT DATE: 20210510
